FAERS Safety Report 7039489-0 (Version None)
Quarter: 2010Q4

REPORT INFORMATION
  Report Type: 
  Country: None (occurrence: None)
  Receive Date: 20101012
  Receipt Date: 20101004
  Transmission Date: 20110411
  Serious: Yes (Other)
  Sender: FDA-Public Use
  Company Number: US-ROCHE-732029

PATIENT
  Sex: Female
  Weight: 57.7 kg

DRUGS (16)
  1. PEGASYS [Suspect]
     Indication: HEPATITIS C
     Route: 058
     Dates: start: 20080907, end: 20090922
  2. RIBAVIRIN [Suspect]
     Indication: HEPATITIS C
     Route: 048
     Dates: start: 20080907, end: 20090922
  3. PHENOBARBITAL [Concomitant]
     Route: 048
  4. DILANTIN [Concomitant]
     Route: 048
  5. TOPAMAX [Concomitant]
     Indication: MIGRAINE
     Route: 048
  6. PREVACID [Concomitant]
     Route: 048
  7. FOSAMAX [Concomitant]
     Indication: OSTEOPENIA
     Route: 048
  8. HYDROCODONE [Concomitant]
     Indication: PAIN
     Dosage: 5/500 MG AS REQUIRED
     Route: 048
  9. PROMETHAZINE [Concomitant]
     Indication: NAUSEA
     Route: 048
  10. FEXOFENADINE HCL [Concomitant]
     Indication: SEASONAL ALLERGY
     Route: 048
  11. NASONEX [Concomitant]
     Dosage: FORM: NASAL SPRAY, DOSING REGIME: DAILY
     Route: 045
  12. DESONIDE [Concomitant]
     Indication: DERMATITIS
     Dosage: AS NEEDED
  13. AMITIZA [Concomitant]
     Indication: CONSTIPATION
  14. HYOSCYAMINE [Concomitant]
     Indication: IRRITABLE BOWEL SYNDROME
  15. CALCIUM [Concomitant]
  16. CARISOPRODOL [Concomitant]
     Indication: PAIN
     Dosage: AT NIGHT

REACTIONS (2)
  - ENAMEL ANOMALY [None]
  - LOOSE TOOTH [None]
